FAERS Safety Report 10003805 (Version 2)
Quarter: 2014Q1

REPORT INFORMATION
  Report Type: Spontaneous
  Country: US (occurrence: US)
  Receive Date: 20140312
  Receipt Date: 20140312
  Transmission Date: 20141002
  Serious: No
  Sender: FDA-Public Use
  Company Number: US-ABBVIE-11P-163-0860240-00

PATIENT
  Sex: Female
  Weight: 49.03 kg

DRUGS (1)
  1. DEPAKOTE [Suspect]
     Indication: BIPOLAR DISORDER

REACTIONS (4)
  - Trigeminal neuralgia [Not Recovered/Not Resolved]
  - Dyskinesia [Recovered/Resolved with Sequelae]
  - Facial pain [Not Recovered/Not Resolved]
  - Tremor [Recovering/Resolving]
